FAERS Safety Report 9422728 (Version 2)
Quarter: 2013Q3

REPORT INFORMATION
  Report Type: Spontaneous
  Country: GB (occurrence: GB)
  Receive Date: 20130726
  Receipt Date: 20130807
  Transmission Date: 20140515
  Serious: Yes (Other)
  Sender: FDA-Public Use
  Company Number: GB-BRACCO-000747

PATIENT
  Age: 87 Year
  Sex: Male

DRUGS (7)
  1. MULTIHANCE [Suspect]
     Indication: ANGIOGRAM
     Route: 041
     Dates: start: 20130712, end: 20130712
  2. CO-AMOXICLAV [Concomitant]
     Indication: GANGRENE
  3. CODEINE [Concomitant]
  4. ASPIRIN [Concomitant]
  5. HYDROXYZINE [Concomitant]
  6. TAMSULOSIN [Concomitant]
  7. PARACETAMOL [Concomitant]

REACTIONS (2)
  - Nausea [Recovered/Resolved]
  - Procedural vomiting [Recovered/Resolved]
